FAERS Safety Report 24336591 (Version 1)
Quarter: 2024Q3

REPORT INFORMATION
  Report Type: Spontaneous
  Country: CN (occurrence: CN)
  Receive Date: 20240919
  Receipt Date: 20240919
  Transmission Date: 20241017
  Serious: No
  Sender: ROCHE
  Company Number: CN-ROCHE-3485056

PATIENT
  Age: 67 Year
  Sex: Female
  Weight: 65.0 kg

DRUGS (4)
  1. TAMIFLU [Suspect]
     Active Substance: OSELTAMIVIR PHOSPHATE
     Indication: Influenza
     Route: 048
     Dates: start: 20231223, end: 20231228
  2. SAN AO PIAN [Concomitant]
     Route: 048
     Dates: start: 20231227
  3. CEFUROXIME AXETIL [Concomitant]
     Active Substance: CEFUROXIME AXETIL
     Dates: start: 20231227, end: 20231228
  4. PU DI LAN KOU FU YE (UNK INGREDIENTS) [Concomitant]
     Route: 048
     Dates: start: 20231224

REACTIONS (3)
  - Headache [Recovering/Resolving]
  - Nausea [Recovering/Resolving]
  - Decreased appetite [Unknown]

NARRATIVE: CASE EVENT DATE: 20231225
